FAERS Safety Report 5563221-0 (Version None)
Quarter: 2007Q4

REPORT INFORMATION
  Report Type: 
  Country: None (occurrence: None)
  Receive Date: 20071213
  Receipt Date: 20071213
  Transmission Date: 20080405
  Serious: Yes (Other)
  Sender: FDA-Public Use
  Company Number: None

PATIENT
  Age: 54 Year
  Sex: Female
  Weight: 129.638 kg

DRUGS (6)
  1. METOPROLOL TARTRATE [Suspect]
     Indication: ATRIAL FIBRILLATION
     Dosage: TWO DAILY , ORAL
     Route: 048
  2. METOPROLOL TARTRATE [Suspect]
     Indication: HYPERTENSION
     Dosage: TWO DAILY , ORAL
     Route: 048
  3. LISINOPRIL [Concomitant]
  4. SIMVASTATIN [Concomitant]
  5. FOSAMAX [Concomitant]
  6. TOPROL-XL [Suspect]

REACTIONS (7)
  - ATRIAL FIBRILLATION [None]
  - CHEST DISCOMFORT [None]
  - FATIGUE [None]
  - ILL-DEFINED DISORDER [None]
  - MALAISE [None]
  - MYALGIA [None]
  - PALPITATIONS [None]
